FAERS Safety Report 5350396-1 (Version None)
Quarter: 2007Q2

REPORT INFORMATION
  Report Type: 
  Country: None (occurrence: None)
  Receive Date: 20070605
  Receipt Date: 20070605
  Transmission Date: 20071010
  Serious: Yes (Death)
  Sender: FDA-Public Use
  Company Number: None

PATIENT
  Age: 65 Year
  Sex: Male
  Weight: 153.7694 kg

DRUGS (13)
  1. RITUXAN [Suspect]
     Indication: NON-HODGKIN'S LYMPHOMA
     Dosage: 985 MG EVERY 7 DAYS IV
     Route: 036
     Dates: start: 20070413
  2. RITUXAN [Suspect]
     Indication: NON-HODGKIN'S LYMPHOMA
     Dosage: 985 MG EVERY 7 DAYS IV
     Route: 036
     Dates: start: 20070420
  3. RITUXAN [Suspect]
     Indication: NON-HODGKIN'S LYMPHOMA
     Dosage: 985 MG EVERY 7 DAYS IV
     Route: 036
     Dates: start: 20070427
  4. ALLOPURINOL [Concomitant]
  5. NORCO [Concomitant]
  6. TOPROL-XL [Concomitant]
  7. CELEBREX [Concomitant]
  8. PRILOSEC [Concomitant]
  9. FUROSEMIDE [Concomitant]
  10. MAG OXIDE [Concomitant]
  11. ASPIRIN [Concomitant]
  12. SENNA [Concomitant]
  13. M.V.I. [Concomitant]

REACTIONS (5)
  - ACUTE RESPIRATORY DISTRESS SYNDROME [None]
  - HYPOXIA [None]
  - LUNG INFILTRATION [None]
  - MECHANICAL VENTILATION [None]
  - RESPIRATORY FAILURE [None]
